FAERS Safety Report 20484729 (Version 1)
Quarter: 2022Q1

REPORT INFORMATION
  Report Type: Spontaneous
  Country: US (occurrence: US)
  Receive Date: 20220217
  Receipt Date: 20220217
  Transmission Date: 20220423
  Serious: No
  Sender: FDA-Public Use
  Company Number: US-drreddys-SPO/USA/22/0146853

PATIENT
  Age: 71 Year
  Sex: Male
  Weight: 94.5 kg

DRUGS (2)
  1. NICOTINE [Suspect]
     Active Substance: NICOTINE
     Indication: Tobacco user
     Route: 062
     Dates: start: 20211126, end: 2021
  2. NICOTINE [Suspect]
     Active Substance: NICOTINE
     Route: 062
     Dates: start: 202202

REACTIONS (5)
  - Application site erythema [Unknown]
  - Dermatitis contact [Unknown]
  - Product dose omission issue [Unknown]
  - Product administration interrupted [Unknown]
  - Underdose [Unknown]
